FAERS Safety Report 11114807 (Version 1)
Quarter: 2015Q2

REPORT INFORMATION
  Report Type: Spontaneous
  Country: FR (occurrence: FR)
  Receive Date: 20150515
  Receipt Date: 20150515
  Transmission Date: 20150821
  Serious: Yes (Other)
  Sender: FDA-Public Use
  Company Number: FR-ACCORD-030638

PATIENT
  Age: 32 Year
  Sex: Male

DRUGS (1)
  1. LEVETIRACETAM. [Suspect]
     Active Substance: LEVETIRACETAM
     Indication: SEIZURE
     Dosage: INITIALLY RECEIVED 2000 MG PER DAY FOLLOWED BY INCREASING DOSE OF LEVETIRACETAM

REACTIONS (1)
  - Obsessive-compulsive disorder [Recovering/Resolving]
